FAERS Safety Report 9266455 (Version 2)
Quarter: 2013Q2

REPORT INFORMATION
  Report Type: Report from Study
  Country: US (occurrence: US)
  Receive Date: 20130502
  Receipt Date: 20130509
  Transmission Date: 20140414
  Serious: No
  Sender: FDA-Public Use
  Company Number: US-VERTEX PHARMACEUTICALS INC-2013-004624

PATIENT
  Age: 17 Year
  Sex: Male

DRUGS (10)
  1. VX-770 [Suspect]
     Indication: CYSTIC FIBROSIS
     Dosage: 150 MG, QD
     Route: 048
     Dates: start: 20130407
  2. CIPROFLOXACIN [Concomitant]
  3. IBUPROFEN [Concomitant]
  4. ALBUTEROL [Concomitant]
  5. HYPERTONIC SALINE SOLUTION [Concomitant]
  6. ENZYMES [Concomitant]
  7. VITAMIN K [Concomitant]
  8. VITAMIN D [Concomitant]
  9. PULMOZYME [Concomitant]
  10. OMEPRAZOLE [Concomitant]

REACTIONS (2)
  - Rib fracture [Unknown]
  - Disturbance in attention [Not Recovered/Not Resolved]
